FAERS Safety Report 6731170-8 (Version None)
Quarter: 2010Q2

REPORT INFORMATION
  Report Type: 
  Country: None (occurrence: None)
  Receive Date: 20100518
  Receipt Date: 20100507
  Transmission Date: 20101027
  Serious: Yes (Hospitalization)
  Sender: FDA-Public Use
  Company Number: PHHY2010JP18095

PATIENT
  Sex: Male

DRUGS (7)
  1. NEORAL [Suspect]
     Indication: NEPHROTIC SYNDROME
     Dosage: 90-110 MG DAILY
     Route: 048
     Dates: start: 20040101
  2. ZADITEN [Suspect]
     Indication: URTICARIA
     Dosage: 0.9 MG, BID
     Route: 048
     Dates: start: 20100108
  3. ERYTHROCIN LACTOBIONATE [Suspect]
     Indication: PNEUMONIA
     Dosage: 200 MG, TID
     Route: 048
     Dates: start: 20100320, end: 20100321
  4. PERIACTIN [Concomitant]
     Indication: PNEUMONIA
     Dosage: 8 MG, UNK
     Route: 048
     Dates: start: 20100320, end: 20100321
  5. ASVERIN [Concomitant]
     Indication: PNEUMONIA
     Dosage: 20 MG, UNK
     Route: 048
     Dates: start: 20100320, end: 20100326
  6. MUCOSOLVAN [Concomitant]
     Indication: PNEUMONIA
     Dosage: 30 MG, UNK
     Route: 048
     Dates: start: 20100320, end: 20100326
  7. CALONAL [Concomitant]
     Indication: PNEUMONIA
     Dosage: UNK
     Route: 048
     Dates: start: 20100320, end: 20100326

REACTIONS (7)
  - BLOOD CREATINE PHOSPHOKINASE INCREASED [None]
  - CARDIAC FUNCTION TEST ABNORMAL [None]
  - CONGESTIVE CARDIOMYOPATHY [None]
  - ECHOCARDIOGRAM ABNORMAL [None]
  - MALAISE [None]
  - PNEUMONIA [None]
  - PYREXIA [None]
